FAERS Safety Report 22324969 (Version 1)
Quarter: 2023Q2

REPORT INFORMATION
  Report Type: Spontaneous
  Country: US (occurrence: None)
  Receive Date: 20230513
  Receipt Date: 20230513
  Transmission Date: 20230722
  Serious: Yes (Disabling)
  Sender: FDA-Public Use
  Company Number: None

PATIENT
  Age: 71 Year
  Sex: Female
  Weight: 56.25 kg

DRUGS (20)
  1. RIFAMPIN [Suspect]
     Active Substance: RIFAMPIN
     Indication: Cat scratch disease
     Dosage: FREQUENCY : TWICE A DAY;?
     Route: 048
     Dates: start: 20230418, end: 20230419
  2. TRAZODONE [Concomitant]
     Active Substance: TRAZODONE HYDROCHLORIDE
  3. MELOXICAM [Concomitant]
     Active Substance: MELOXICAM
  4. FLEXERIL [Concomitant]
     Active Substance: CYCLOBENZAPRINE HYDROCHLORIDE
  5. PROPRANOLOL [Concomitant]
     Active Substance: PROPRANOLOL HYDROCHLORIDE
  6. QUERCETIN [Concomitant]
     Active Substance: QUERCETIN
  7. RUTIN [Concomitant]
     Active Substance: RUTIN
  8. LUTEOLIN [Concomitant]
  9. CHOLECALCIFEROL [Concomitant]
     Active Substance: CHOLECALCIFEROL
  10. FISH OIL [Concomitant]
     Active Substance: FISH OIL
  11. cryptolpesis [Concomitant]
  12. lomatium [Concomitant]
  13. Japanese knotweed [Concomitant]
  14. AILANTHUS [Concomitant]
     Active Substance: AILANTHUS ALTISSIMA POLLEN
  15. Kudzu [Concomitant]
  16. Celandine [Concomitant]
  17. MB12 [Concomitant]
  18. LEVOMEFOLATE CALCIUM [Concomitant]
     Active Substance: LEVOMEFOLATE CALCIUM
  19. natto/serra [Concomitant]
  20. LUMBROKINASE [Concomitant]

REACTIONS (11)
  - Malaise [None]
  - Muscle spasms [None]
  - Abdominal distension [None]
  - Migraine [None]
  - Tachycardia [None]
  - Histamine level increased [None]
  - Fatigue [None]
  - Gait inability [None]
  - Arthralgia [None]
  - Pain [None]
  - Near death experience [None]

NARRATIVE: CASE EVENT DATE: 20230418
